FAERS Safety Report 5275517-0 (Version None)
Quarter: 2007Q1

REPORT INFORMATION
  Report Type: 
  Country: None (occurrence: None)
  Receive Date: 20070326
  Receipt Date: 20070313
  Transmission Date: 20070707
  Serious: Yes (Disabling)
  Sender: FDA-Public Use
  Company Number: DEWYE714002JUN05

PATIENT
  Age: 44 Year
  Sex: Male

DRUGS (8)
  1. ENBREL [Suspect]
     Indication: RHEUMATOID ARTHRITIS
     Dosage: UNKNOWN
     Route: 058
     Dates: start: 20050301, end: 20060801
  2. ARAVA [Concomitant]
     Dosage: UNKNOWN
     Route: 048
     Dates: start: 20041101, end: 20050201
  3. OXYCODONE HCL [Concomitant]
     Dosage: UNKNOWN
     Route: 048
     Dates: start: 20030701
  4. FOLIC ACID [Concomitant]
     Route: 048
  5. CALCIUM [Concomitant]
  6. COLECALCIFEROL [Concomitant]
  7. METHOTREXATE [Concomitant]
     Indication: RHEUMATOID ARTHRITIS
     Route: 065
     Dates: start: 20040701
  8. PREDNISOLONE [Concomitant]
     Route: 048

REACTIONS (2)
  - GINGIVAL RECESSION [None]
  - TOOTH EXTRACTION [None]
